FAERS Safety Report 10784409 (Version 1)
Quarter: 2015Q1

REPORT INFORMATION
  Report Type: Spontaneous
  Country: US (occurrence: None)
  Receive Date: 20150209
  Receipt Date: 20150209
  Transmission Date: 20150721
  Serious: No
  Sender: FDA-Public Use
  Company Number: None

PATIENT
  Sex: Male

DRUGS (2)
  1. CLOBETASOL PROPIONATE. [Suspect]
     Active Substance: CLOBETASOL PROPIONATE
  2. TRETINOIN. [Suspect]
     Active Substance: TRETINOIN

REACTIONS (5)
  - Application site scar [None]
  - Drug dispensing error [None]
  - Wrong drug administered [None]
  - Drug prescribing error [None]
  - Dermatitis acneiform [None]

NARRATIVE: CASE EVENT DATE: 2014
